FAERS Safety Report 7728512-3 (Version None)
Quarter: 2011Q3

REPORT INFORMATION
  Report Type: 
  Country: None (occurrence: None)
  Receive Date: 20110906
  Receipt Date: 20110828
  Transmission Date: 20111222
  Serious: Yes (Other)
  Sender: FDA-Public Use
  Company Number: IL-AMGEN-ISRSP2011044550

PATIENT
  Age: 54 Year
  Sex: Female

DRUGS (6)
  1. ENBREL [Suspect]
     Indication: RHEUMATOID ARTHRITIS
     Dosage: 50 MG, WEEKLY, PFS
     Dates: start: 20110710, end: 20110801
  2. LEVOTHYROXINE SODIUM [Concomitant]
     Dosage: UNK UNK, UNK
  3. VITAMIN D [Concomitant]
     Dosage: UNK
  4. SIMVASTATIN [Concomitant]
     Dosage: UNK
  5. FERROUS SULFATE TAB [Concomitant]
     Dosage: UNK UNK, UNK
  6. METHOTREXATE SODIUM [Concomitant]
     Dosage: UNK

REACTIONS (1)
  - DERMATITIS BULLOUS [None]
